FAERS Safety Report 7065103-4 (Version None)
Quarter: 2010Q4

REPORT INFORMATION
  Report Type: 
  Country: None (occurrence: None)
  Receive Date: 20101019
  Receipt Date: 20101004
  Transmission Date: 20110411
  Serious: Yes (Hospitalization)
  Sender: FDA-Public Use
  Company Number: 1000016685

PATIENT
  Age: 20 Year
  Sex: Female

DRUGS (4)
  1. ESCITALOPRAM [Suspect]
     Dosage: 10 MG (10 MG, 1 IN 1 D)
     Dates: start: 20070101
  2. CISORDINOL (ZUCLOPENTHIXOL DIHYDROCHLORIDE) (TABLETS) [Suspect]
     Dosage: 30 MG (30 MG, 1 IN 1 D)
     Dates: start: 20090301
  3. VALIUM (DIAZEPAM) (TABLETS) (DIAZEPAM) [Concomitant]
  4. AKINETON (BIPERIDEN) (TABLETS) (BIPERIDEN) [Concomitant]

REACTIONS (1)
  - OCULOGYRIC CRISIS [None]
